FAERS Safety Report 4471003-6 (Version None)
Quarter: 2004Q4

REPORT INFORMATION
  Report Type: 
  Country: None (occurrence: None)
  Receive Date: 20041011
  Receipt Date: 20041004
  Transmission Date: 20050328
  Serious: Yes (Hospitalization)
  Sender: FDA-Public Use
  Company Number: FR-ROCHE-382298

PATIENT
  Age: 63 Year
  Sex: Female

DRUGS (16)
  1. ROCEPHIN [Suspect]
     Indication: DRUG USE FOR UNKNOWN INDICATION
     Route: 042
     Dates: start: 20040312, end: 20040324
  2. RIFADIN [Suspect]
     Indication: DRUG USE FOR UNKNOWN INDICATION
     Route: 048
     Dates: start: 20040109, end: 20040325
  3. ACUPAN [Concomitant]
  4. LEVOTHYROX [Concomitant]
     Indication: HYPOTHYROIDISM
  5. PIRILENE [Concomitant]
  6. ETHAMBUTOL HCL [Concomitant]
  7. RIFAMPICINE [Concomitant]
  8. CORTANCYL [Concomitant]
  9. SEROPRAM [Concomitant]
  10. LASILIX [Concomitant]
  11. SABRIL [Concomitant]
  12. GARDENAL [Concomitant]
  13. DI-HYDAN [Concomitant]
  14. VITAMIN B6 [Concomitant]
  15. DIFFU K [Concomitant]
  16. INH [Concomitant]

REACTIONS (6)
  - HAEMODIALYSIS [None]
  - NEPHRITIS INTERSTITIAL [None]
  - NEPHROPATHY TOXIC [None]
  - RENAL FAILURE ACUTE [None]
  - SEPSIS [None]
  - URINARY TRACT OBSTRUCTION [None]
